FAERS Safety Report 9047358 (Version 1)
Quarter: 2013Q1

REPORT INFORMATION
  Report Type: Report from Study
  Country: US (occurrence: US)
  Receive Date: 20130131
  Receipt Date: 20130131
  Transmission Date: 20140127
  Serious: No
  Sender: FDA-Public Use
  Company Number: US-ABBOTT-12P-163-0980785-00

PATIENT
  Age: 57 Year
  Sex: Male

DRUGS (4)
  1. HUMIRA [Suspect]
     Indication: COLITIS ULCERATIVE
     Dosage: STARTER DOSE
     Route: 058
     Dates: start: 20120912
  2. LIALDA [Concomitant]
     Indication: INFLAMMATION
     Dosage: EVERY MORNING
  3. PREDNISONE [Concomitant]
     Indication: INFLAMMATION
     Dosage: DAILY
     Route: 048
  4. DIPHEN ATROPINE [Concomitant]
     Indication: DIARRHOEA
     Dosage: 2 PILLS EVERY 4 HOURS
     Route: 048

REACTIONS (1)
  - Diarrhoea [Not Recovered/Not Resolved]
